FAERS Safety Report 16296568 (Version 1)
Quarter: 2019Q2

REPORT INFORMATION
  Report Type: Spontaneous
  Country: FR (occurrence: FR)
  Receive Date: 20190510
  Receipt Date: 20190510
  Transmission Date: 20190711
  Serious: Yes (Other)
  Sender: FDA-Public Use
  Company Number: FR-PROVELL PHARMACEUTICALS-2066864

PATIENT
  Age: 49 Year
  Sex: Female
  Weight: 76 kg

DRUGS (15)
  1. LETROZOLE SANDOZ [Suspect]
     Active Substance: LETROZOLE
     Route: 048
     Dates: start: 20181207
  2. HEMIGOXINE NATIVELLE [Suspect]
     Active Substance: DIGOXIN
     Route: 048
     Dates: start: 2007
  3. KARDEGIC [Suspect]
     Active Substance: ASPIRIN DL-LYSINE
     Route: 048
     Dates: start: 2007
  4. PROCORALAN [Suspect]
     Active Substance: IVABRADINE
     Route: 048
     Dates: start: 2012
  5. ENDOTELON [Suspect]
     Active Substance: HERBALS\VITIS VINIFERA LEAF
     Route: 048
     Dates: start: 2012
  6. METFORMIN HYDROCHLORIDE. [Suspect]
     Active Substance: METFORMIN HYDROCHLORIDE
     Route: 048
     Dates: start: 2012
  7. RABEPRAZOLE SODIUM. [Suspect]
     Active Substance: RABEPRAZOLE SODIUM
     Route: 048
     Dates: start: 2012
  8. EUTHYROX [Suspect]
     Active Substance: LEVOTHYROXINE SODIUM
     Indication: HYPOTHYROIDISM
     Route: 048
     Dates: start: 2007
  9. FUROSEMIDE. [Suspect]
     Active Substance: FUROSEMIDE
     Route: 048
     Dates: start: 2007
  10. RAMIPRIL. [Suspect]
     Active Substance: RAMIPRIL
     Route: 048
     Dates: start: 2007
  11. ALLOPURINOL. [Suspect]
     Active Substance: ALLOPURINOL
     Route: 048
     Dates: start: 2007
  12. EUCREAS [Suspect]
     Active Substance: METFORMIN HYDROCHLORIDE\VILDAGLIPTIN
     Route: 048
     Dates: start: 2016
  13. SPIRONOLACTONE. [Suspect]
     Active Substance: SPIRONOLACTONE
     Route: 048
     Dates: start: 2007
  14. NEBIVOLOL. [Suspect]
     Active Substance: NEBIVOLOL
     Route: 048
     Dates: start: 2007
  15. DIAMICRON [Suspect]
     Active Substance: GLICLAZIDE
     Route: 048
     Dates: start: 2016

REACTIONS (2)
  - Hot flush [Not Recovered/Not Resolved]
  - Memory impairment [Not Recovered/Not Resolved]

NARRATIVE: CASE EVENT DATE: 201901
